FAERS Safety Report 23410576 (Version 1)
Quarter: 2024Q1

REPORT INFORMATION
  Report Type: Spontaneous
  Country: CH (occurrence: CH)
  Receive Date: 20240117
  Receipt Date: 20240117
  Transmission Date: 20240409
  Serious: Yes (Congenital Anomaly, Other)
  Sender: FDA-Public Use
  Company Number: CH-GLAXOSMITHKLINE-CH2024GSK006171

PATIENT

DRUGS (1)
  1. VALACYCLOVIR [Suspect]
     Active Substance: VALACYCLOVIR HYDROCHLORIDE
     Indication: Cytomegalovirus infection
     Dosage: 8 G, QD
     Route: 064

REACTIONS (9)
  - Vertical infection transmission [Unknown]
  - Congenital cytomegalovirus infection [Unknown]
  - Foetal growth restriction [Unknown]
  - Hepatomegaly [Unknown]
  - Ascites [Unknown]
  - Cerebral ventricle dilatation [Unknown]
  - Calcinosis [Unknown]
  - Microencephaly [Unknown]
  - Foetal exposure during pregnancy [Unknown]
